FAERS Safety Report 8836231 (Version 1)
Quarter: 2012Q4

REPORT INFORMATION
  Report Type: 
  Country: US (occurrence: US)
  Receive Date: 20121011
  Receipt Date: 20121011
  Transmission Date: 20130627
  Serious: No
  Sender: FDA-Public Use
  Company Number: US-NOVEN-12US004899

PATIENT
  Sex: Female

DRUGS (3)
  1. FENTANYL [Suspect]
     Indication: PAIN
     Dosage: 75 ug/hr, every 48 hrs
     Route: 062
     Dates: start: 201206
  2. FENTANYL [Suspect]
     Dosage: 75 ug/hr, every 48 hrs
     Route: 062
     Dates: start: 201206
  3. FENTANYL [Suspect]
     Dosage: 75 ug/hr, every 48 hrs
     Route: 062
     Dates: start: 201206

REACTIONS (2)
  - Inadequate analgesia [Not Recovered/Not Resolved]
  - Product quality issue [Not Recovered/Not Resolved]
